FAERS Safety Report 10930271 (Version 1)
Quarter: 2015Q1

REPORT INFORMATION
  Report Type: Spontaneous
  Country: US (occurrence: US)
  Receive Date: 20150319
  Receipt Date: 20150319
  Transmission Date: 20150721
  Serious: No
  Sender: FDA-Public Use
  Company Number: US-PFIZER INC-2015091514

PATIENT
  Sex: Female

DRUGS (3)
  1. LYRICA [Suspect]
     Active Substance: PREGABALIN
     Dosage: 100 MG, UNK
  2. LYRICA [Suspect]
     Active Substance: PREGABALIN
     Dosage: 150 MG, UNK
  3. LYRICA [Suspect]
     Active Substance: PREGABALIN
     Dosage: 75 MG, UNK

REACTIONS (13)
  - Mood altered [Unknown]
  - Anxiety [Unknown]
  - Drug withdrawal syndrome [Unknown]
  - General physical health deterioration [Unknown]
  - Chest pain [Unknown]
  - Limb discomfort [Unknown]
  - Anger [Unknown]
  - Logorrhoea [Unknown]
  - Abnormal behaviour [Unknown]
  - Restlessness [Unknown]
  - Sleep disorder [Unknown]
  - Panic attack [Unknown]
  - Agitation [Unknown]
